FAERS Safety Report 8262687-5 (Version None)
Quarter: 2012Q2

REPORT INFORMATION
  Report Type: 
  Country: None (occurrence: None)
  Receive Date: 20120405
  Receipt Date: 20120330
  Transmission Date: 20120825
  Serious: Yes (Hospitalization)
  Sender: FDA-Public Use
  Company Number: FR-SANOFI-AVENTIS-2012SA022459

PATIENT
  Age: 84 Year
  Sex: Male

DRUGS (10)
  1. ISOPTIN [Concomitant]
     Route: 065
  2. FERROUS SULFATE TAB [Concomitant]
     Route: 065
  3. POTASSIUM CHLORIDE [Concomitant]
     Route: 065
  4. NEXIUM [Concomitant]
     Route: 065
  5. LASIX [Concomitant]
     Route: 065
  6. LANREOTIDE [Concomitant]
     Route: 030
  7. ZOLPIDEM TARTRATE [Suspect]
     Route: 048
     Dates: end: 20110101
  8. VITAMIN B6 [Concomitant]
     Route: 065
  9. PREDNISONE TAB [Concomitant]
     Route: 065
  10. VITAMIN B1 TAB [Concomitant]
     Route: 065

REACTIONS (2)
  - HEPATIC ENCEPHALOPATHY [None]
  - CONFUSIONAL STATE [None]
